FAERS Safety Report 5124207-3 (Version None)
Quarter: 2006Q4

REPORT INFORMATION
  Report Type: 
  Country: None (occurrence: None)
  Receive Date: 20061010
  Receipt Date: 20060811
  Transmission Date: 20070319
  Serious: Yes (Other)
  Sender: FDA-Public Use
  Company Number: 2006UW16081

PATIENT
  Age: 83 Year
  Sex: Female
  Weight: 80.7 kg

DRUGS (3)
  1. ARIMIDEX [Suspect]
     Indication: BREAST CANCER RECURRENT
     Route: 048
     Dates: start: 20040101
  2. ASPIRIN [Concomitant]
  3. XANAX [Concomitant]

REACTIONS (1)
  - NON-SMALL CELL LUNG CANCER [None]
